FAERS Safety Report 12204132 (Version 1)
Quarter: 2016Q1

REPORT INFORMATION
  Report Type: Spontaneous
  Country: US (occurrence: None)
  Receive Date: 20160322
  Receipt Date: 20160322
  Transmission Date: 20160526
  Serious: Yes (Disabling, Other)
  Sender: FDA-Public Use
  Company Number: None

PATIENT
  Age: 58 Year
  Sex: Female
  Weight: 104.33 kg

DRUGS (1)
  1. LEVAQUIN [Suspect]
     Active Substance: LEVOFLOXACIN
     Dosage: 500MG 1 ORAL
     Dates: start: 20160303, end: 20160307

REACTIONS (5)
  - Myalgia [None]
  - Tendon pain [None]
  - Arthralgia [None]
  - Mobility decreased [None]
  - Pain [None]

NARRATIVE: CASE EVENT DATE: 20160307
